FAERS Safety Report 14834350 (Version 1)
Quarter: 2018Q2

REPORT INFORMATION
  Report Type: Spontaneous
  Country: US (occurrence: US)
  Receive Date: 20180411
  Receipt Date: 20180411
  Transmission Date: 20180711
  Serious: Yes (Hospitalization, Disabling)
  Sender: FDA-Public Use
  Company Number: None

PATIENT
  Age: 42 Year
  Sex: Female
  Weight: 72 kg

DRUGS (3)
  1. LEVOFLOXACIN. [Suspect]
     Active Substance: LEVOFLOXACIN
     Indication: INFECTION
     Dosage: ?          QUANTITY:10 DF DOSAGE FORM;?
     Route: 048
     Dates: start: 20180221, end: 20180228
  2. ADVIL [Concomitant]
     Active Substance: IBUPROFEN
  3. LEVOFLOXACIN. [Suspect]
     Active Substance: LEVOFLOXACIN
     Indication: PNEUMONIA
     Dosage: QUANTITY:5 DF DOSAGE FORM; AT BEDTIME?
     Route: 048
     Dates: start: 20180108, end: 20180112

REACTIONS (12)
  - Nausea [None]
  - Hyperhidrosis [None]
  - Chills [None]
  - Heart rate increased [None]
  - Myalgia [None]
  - Dizziness [None]
  - Renal pain [None]
  - Arthritis [None]
  - Initial insomnia [None]
  - Tremor [None]
  - Feeling cold [None]
  - Arthralgia [None]

NARRATIVE: CASE EVENT DATE: 20180224
